FAERS Safety Report 4684084-1 (Version None)
Quarter: 2005Q2

REPORT INFORMATION
  Report Type: 
  Country: None (occurrence: None)
  Receive Date: 20050531
  Receipt Date: 20050425
  Transmission Date: 20051028
  Serious: Yes (Hospitalization, Other)
  Sender: FDA-Public Use
  Company Number: US_0411107585

PATIENT
  Age: 49 Year
  Sex: Male
  Weight: 105 kg

DRUGS (11)
  1. ZYPREXA [Suspect]
     Dosage: 5 MG AT BEDTIME
     Dates: start: 20010201, end: 20010331
  2. 12MG/50MG OLANZAPINE/FLUOXETINE CAPSULE [Concomitant]
  3. ZANTAC [Concomitant]
  4. PRINIVIL [Concomitant]
  5. HYDROCHLOROTHIAZIDE [Concomitant]
  6. ISORDIL [Concomitant]
  7. ATENOLOL [Concomitant]
  8. DARVOCET-N 100 [Concomitant]
  9. PLENDIL [Concomitant]
  10. LOPID [Concomitant]
  11. ACTOS [Concomitant]

REACTIONS (6)
  - BLINDNESS [None]
  - CEREBROVASCULAR ACCIDENT [None]
  - DIABETES MELLITUS NON-INSULIN-DEPENDENT [None]
  - HYPERGLYCAEMIA [None]
  - IMPAIRED HEALING [None]
  - WEIGHT INCREASED [None]
